FAERS Safety Report 8437399-5 (Version None)
Quarter: 2012Q2

REPORT INFORMATION
  Report Type: 
  Country: None (occurrence: None)
  Receive Date: 20120614
  Receipt Date: 20120316
  Transmission Date: 20120825
  Serious: No
  Sender: FDA-Public Use
  Company Number: US-AMGEN-USASP2012017446

PATIENT
  Sex: Female

DRUGS (3)
  1. PROLIA [Suspect]
     Indication: OSTEOPOROSIS POSTMENOPAUSAL
     Dosage: 60 MG, Q6MO
     Dates: start: 20110801
  2. METHOTREXATE [Concomitant]
     Indication: RHEUMATOID ARTHRITIS
     Dosage: UNK
  3. ENBREL [Suspect]
     Indication: RHEUMATOID ARTHRITIS
     Dosage: 50 MG, QWK
     Dates: start: 20101201

REACTIONS (10)
  - RESPIRATORY TRACT CONGESTION [None]
  - INJECTION SITE REACTION [None]
  - RED BLOOD CELL SEDIMENTATION RATE INCREASED [None]
  - DRY SKIN [None]
  - BLOOD CHOLESTEROL INCREASED [None]
  - NASOPHARYNGITIS [None]
  - SKIN REACTION [None]
  - SCAB [None]
  - SKIN DISCOLOURATION [None]
  - RASH [None]
